FAERS Safety Report 8024146-4 (Version None)
Quarter: 2012Q1

REPORT INFORMATION
  Report Type: 
  Country: None (occurrence: None)
  Receive Date: 20120105
  Receipt Date: 20111227
  Transmission Date: 20120608
  Serious: Yes (Hospitalization)
  Sender: FDA-Public Use
  Company Number: CA-ELI_LILLY_AND_COMPANY-CA201112007691

PATIENT
  Age: 69 Year
  Sex: Female

DRUGS (28)
  1. NEXIUM [Concomitant]
  2. ADVAIR DISKUS 100/50 [Concomitant]
  3. FISH OIL [Concomitant]
  4. PREDNISONE TAB [Concomitant]
  5. SIALOR [Concomitant]
  6. HUMALOG [Concomitant]
  7. ASPIRIN [Concomitant]
  8. MAGNESIUM [Concomitant]
  9. SALVENT [Concomitant]
  10. LANTUS [Concomitant]
  11. VITAMIN B-12 [Concomitant]
  12. FORTEO [Suspect]
     Indication: OSTEOPOROSIS
     Dosage: 20 UG, QD
     Route: 058
     Dates: start: 20110702, end: 20111224
  13. FORTEO [Suspect]
     Dosage: 20 UG, QD
     Route: 065
     Dates: start: 20120102
  14. DIOVAN [Concomitant]
  15. PLAQUENIL [Concomitant]
  16. CODEINE CONTIN [Concomitant]
  17. VITAMIN D [Concomitant]
  18. DOMPERIDONE [Concomitant]
  19. CALCIUM CARBONATE [Concomitant]
  20. FOLIC ACID [Concomitant]
  21. SENOKOT [Concomitant]
  22. LACTULOSE [Concomitant]
  23. LASIX [Concomitant]
  24. SINGULAIR [Concomitant]
  25. FLONASE [Concomitant]
  26. SOFLAX [Concomitant]
  27. NYSTATIN [Concomitant]
     Indication: RASH
  28. VITAMIN B COMPLEX CAP [Concomitant]

REACTIONS (7)
  - VIRAL PERICARDITIS [None]
  - CHEST PAIN [None]
  - COUGH [None]
  - DYSPNOEA [None]
  - BRONCHITIS [None]
  - NASOPHARYNGITIS [None]
  - PNEUMONIA [None]
